FAERS Safety Report 13798118 (Version 9)
Quarter: 2019Q2

REPORT INFORMATION
  Report Type: Spontaneous
  Country: PT (occurrence: PT)
  Receive Date: 20170727
  Receipt Date: 20190518
  Transmission Date: 20190711
  Serious: Yes (Hospitalization, Other)
  Sender: FDA-Public Use
  Company Number: PT-AUROBINDO-AUR-APL-2017-37559

PATIENT

DRUGS (3)
  1. ALISKIREN [Interacting]
     Active Substance: ALISKIREN
     Indication: HYPERTENSION
     Dosage: UNK
     Route: 065
  2. OLMESARTAN [Suspect]
     Active Substance: OLMESARTAN
     Indication: HYPERTENSION
     Dosage: UNK
     Route: 065
  3. PANTOPRAZOLE [Concomitant]
     Active Substance: PANTOPRAZOLE
     Indication: GASTROOESOPHAGEAL REFLUX DISEASE
     Dosage: UNK
     Route: 065

REACTIONS (9)
  - Hypovolaemic shock [Recovered/Resolved]
  - Metabolic acidosis [Recovering/Resolving]
  - Diarrhoea [Recovered/Resolved]
  - Gastrointestinal disorder [Recovering/Resolving]
  - Sprue-like enteropathy [Recovered/Resolved]
  - Deep vein thrombosis [Recovering/Resolving]
  - Dehydration [Recovering/Resolving]
  - Acute kidney injury [Recovered/Resolved]
  - Drug interaction [Unknown]
